FAERS Safety Report 17032995 (Version 9)
Quarter: 2021Q4

REPORT INFORMATION
  Report Type: Report from Study
  Country: AT (occurrence: AT)
  Receive Date: 20191114
  Receipt Date: 20211122
  Transmission Date: 20220304
  Serious: Yes (Hospitalization, Other)
  Sender: FDA-Public Use
  Company Number: AT-ROCHE-2288518

PATIENT
  Age: 40 Year
  Sex: Female
  Weight: 60 kg

DRUGS (19)
  1. TRASTUZUMAB [Suspect]
     Active Substance: TRASTUZUMAB
     Indication: HER2 positive breast cancer
     Dosage: ON 19/JUL/2019, MOST RECENT DOSE
     Route: 042
     Dates: start: 20190222, end: 20190719
  2. TRASTUZUMAB [Suspect]
     Active Substance: TRASTUZUMAB
     Dosage: MOST RECENT DOSE PRIOR TO EVENT: 17/MAY/2018 MOST RECENT DOSE PRIOR TO EVENT: 25/APR/2018
     Route: 042
     Dates: start: 20180425
  3. XGEVA [Suspect]
     Active Substance: DENOSUMAB
     Indication: Breast cancer metastatic
     Dosage: 120 MILLIGRAM, 4XW
     Route: 058
     Dates: start: 20180502
  4. XGEVA [Suspect]
     Active Substance: DENOSUMAB
     Dosage: UNK
     Route: 058
     Dates: start: 20180618, end: 20191116
  5. TAXOTERE [Suspect]
     Active Substance: DOCETAXEL
     Indication: Breast cancer metastatic
     Dosage: 75 MILLIGRAM/SQ. METER, Q3W
     Route: 042
     Dates: start: 20180426, end: 20180817
  6. PERTUZUMAB [Suspect]
     Active Substance: PERTUZUMAB
     Indication: Breast cancer metastatic
     Dosage: 840 MILLIGRAM/KILOGRAM, 3XW MOST RECENT DOSE PRIOR TO THE EVENT: 17/MAY/2018
     Route: 042
     Dates: start: 20180425
  7. CAPECITABINE [Suspect]
     Active Substance: CAPECITABINE
     Indication: Breast cancer metastatic
     Dosage: 500 MILLIGRAM
     Route: 048
     Dates: start: 20190724
  8. DOCETAXEL [Suspect]
     Active Substance: DOCETAXEL
     Indication: Breast cancer metastatic
     Dosage: 75 MILLIGRAM/SQ. METER, Q3W
     Route: 042
     Dates: start: 20180426, end: 20180817
  9. FORTECORTIN                        /00016001/ [Concomitant]
     Dosage: UNK ONGOING - NOT CHECKED
     Route: 065
     Dates: start: 20180426, end: 20180817
  10. ZOFRAN                             /00955301/ [Concomitant]
     Dosage: UNK
     Dates: start: 20180426, end: 20180817
  11. ZOFRAN                             /00955301/ [Concomitant]
     Dosage: UNK ONGOING -NOT CHECKED
     Route: 065
     Dates: end: 20190719
  12. ENTEROBENE [Concomitant]
     Indication: Diarrhoea
     Dosage: UNK ONGOING -NOT CHECKED
     Route: 065
     Dates: start: 20180611, end: 20191116
  13. PENTASA [Concomitant]
     Active Substance: MESALAMINE
     Dosage: UNK ONGOING - NOT CHECKED
     Route: 065
     Dates: start: 20191116
  14. PANTOLOC                           /01263201/ [Concomitant]
     Dosage: UNK ONGOING CHECKED
     Route: 065
     Dates: start: 20191116
  15. CIPROXIN                           /00697201/ [Concomitant]
     Dosage: ONGOING, NOT CHECKED
     Dates: end: 20191110
  16. DRONABINOL [Concomitant]
     Active Substance: DRONABINOL
     Dosage: UNK ONGOING -NOT CHECKED
     Dates: start: 20191116
  17. RANITIDINE HYDROCHLORIDE [Concomitant]
     Active Substance: RANITIDINE HYDROCHLORIDE
     Dosage: UNK
     Dates: start: 20180426, end: 20180817
  18. EMEND                              /01627301/ [Concomitant]
     Dosage: UNK
     Dates: start: 20180426, end: 20180817
  19. DIPHENHYDRAMINE HYDROCHLORIDE [Concomitant]
     Active Substance: DIPHENHYDRAMINE HYDROCHLORIDE
     Dosage: UNK
     Dates: start: 20180426, end: 20180817

REACTIONS (12)
  - Dyspnoea [Not Recovered/Not Resolved]
  - General physical health deterioration [Recovered/Resolved]
  - Abdominal distension [Not Recovered/Not Resolved]
  - Fistula [Recovered/Resolved]
  - Anxiety [Recovered/Resolved]
  - Thoracic vertebral fracture [Not Recovered/Not Resolved]
  - Hypokalaemia [Not Recovered/Not Resolved]
  - Weight decreased [Recovered/Resolved]
  - Diarrhoea [Not Recovered/Not Resolved]
  - Vomiting [Not Recovered/Not Resolved]
  - Oedema peripheral [Not Recovered/Not Resolved]
  - Headache [Not Recovered/Not Resolved]

NARRATIVE: CASE EVENT DATE: 20180611
